FAERS Safety Report 6666725-2 (Version None)
Quarter: 2010Q1

REPORT INFORMATION
  Report Type: 
  Country: None (occurrence: None)
  Receive Date: 20100331
  Receipt Date: 20100329
  Transmission Date: 20100710
  Serious: Yes (Life-Threatening, Hospitalization)
  Sender: FDA-Public Use
  Company Number: 96872 -1

PATIENT
  Age: 54 Year
  Sex: Female
  Weight: 56.6996 kg

DRUGS (1)
  1. KETAMINE HCL INJ. USP [Suspect]
     Indication: INDUCTION OF ANAESTHESIA
     Dosage: 35MG/IV/ONCE
     Route: 042
     Dates: start: 20100316

REACTIONS (3)
  - BLOOD PRESSURE INCREASED [None]
  - CARDIAC ARREST [None]
  - STRESS CARDIOMYOPATHY [None]
